FAERS Safety Report 4607615-6 (Version None)
Quarter: 2005Q1

REPORT INFORMATION
  Report Type: 
  Country: None (occurrence: None)
  Receive Date: 20050314
  Receipt Date: 20050307
  Transmission Date: 20050727
  Serious: Yes (Other)
  Sender: FDA-Public Use
  Company Number: PHFR2005GB01117

PATIENT
  Sex: Female
  Weight: 45 kg

DRUGS (1)
  1. RITALIN [Suspect]
     Indication: ATTENTION DEFICIT/HYPERACTIVITY DISORDER
     Route: 048

REACTIONS (4)
  - AMENORRHOEA [None]
  - DRUG ABUSER [None]
  - INFERTILITY [None]
  - OVARIAN FAILURE [None]
